FAERS Safety Report 5714843-5 (Version None)
Quarter: 2008Q2

REPORT INFORMATION
  Report Type: 
  Country: None (occurrence: None)
  Receive Date: 20080423
  Receipt Date: 20070510
  Transmission Date: 20081010
  Serious: No
  Sender: FDA-Public Use
  Company Number: US-BAYER-US-2007-016794

PATIENT
  Age: 50 Year
  Sex: Female

DRUGS (1)
  1. LEUKINE [Suspect]
     Route: 058
     Dates: start: 20061201

REACTIONS (2)
  - INJECTION SITE ERYTHEMA [None]
  - INJECTION SITE RASH [None]
